FAERS Safety Report 4425662-4 (Version None)
Quarter: 2004Q3

REPORT INFORMATION
  Report Type: 
  Country: None (occurrence: None)
  Receive Date: 20040810
  Receipt Date: 20040729
  Transmission Date: 20050211
  Serious: Yes (Hospitalization)
  Sender: FDA-Public Use
  Company Number: 2004RL000068

PATIENT
  Age: 83 Year
  Sex: Female

DRUGS (5)
  1. RYTHMOL SR [Suspect]
     Indication: ATRIAL FIBRILLATION
     Dosage: 325 MG; BID; PO
     Route: 048
     Dates: start: 20040419, end: 20040607
  2. SINGULAIR [Suspect]
     Indication: ASTHMA
     Dosage: 10 MG; QD; PO
     Route: 048
     Dates: end: 20040608
  3. STEROIDS [Concomitant]
  4. BRONCHODILATORS [Concomitant]
  5. CARDIZEM [Concomitant]

REACTIONS (2)
  - ALVEOLITIS [None]
  - LUNG INFILTRATION [None]
